FAERS Safety Report 22113412 (Version 1)
Quarter: 2023Q1

REPORT INFORMATION
  Report Type: Spontaneous
  Country: US (occurrence: US)
  Receive Date: 20230320
  Receipt Date: 20230320
  Transmission Date: 20230418
  Serious: Yes (Death, Other)
  Sender: FDA-Public Use
  Company Number: US-STRIDES ARCOLAB LIMITED-2023SP003998

PATIENT
  Age: 43 Year
  Sex: Male

DRUGS (12)
  1. ETOPOSIDE [Suspect]
     Active Substance: ETOPOSIDE
     Indication: Plasmablastic lymphoma
     Dosage: 50 MILLIGRAM/SQ. METER, CYCLICAL; RECEIVED DURING CYCLE 1 AND 2
     Route: 065
  2. ETOPOSIDE [Suspect]
     Active Substance: ETOPOSIDE
     Dosage: 60 MILLIGRAM/SQ. METER, CYCLICAL; RECEIVED DURING CYCLE 3
     Route: 065
  3. DOXORUBICIN [Suspect]
     Active Substance: DOXORUBICIN
     Indication: Plasmablastic lymphoma
     Dosage: 10 MILLIGRAM/SQ. METER, CYCLICAL; RECEIVED DURING CYCLE 1 AND 2
     Route: 065
  4. DOXORUBICIN [Suspect]
     Active Substance: DOXORUBICIN
     Dosage: 12 MILLIGRAM/SQ. METER, CYCLICAL; RECEIVED DURING CYCLE 3
     Route: 065
  5. METHOTREXATE [Suspect]
     Active Substance: METHOTREXATE
     Indication: Plasmablastic lymphoma
     Dosage: 12 MILLIGRAM, CYCLICAL; RECEIVED DURING CYCLE 1-3
     Route: 037
  6. VINCRISTINE [Suspect]
     Active Substance: VINCRISTINE
     Indication: Plasmablastic lymphoma
     Dosage: 0.4 MILLIGRAM/SQ. METER, CYCLICAL; RECEIVED DURING CYCLE 1-3
     Route: 065
  7. CYCLOPHOSPHAMIDE [Suspect]
     Active Substance: CYCLOPHOSPHAMIDE
     Indication: Plasmablastic lymphoma
     Dosage: 375 MILLIGRAM/SQ. METER, CYCLICAL; RECEIVED DURING CYCLE 1-3
     Route: 065
  8. CYCLOPHOSPHAMIDE [Suspect]
     Active Substance: CYCLOPHOSPHAMIDE
     Dosage: 900 MILLIGRAM/SQ. METER, CYCLICAL; CYCLE 3
     Route: 065
  9. DARATUMUMAB [Suspect]
     Active Substance: DARATUMUMAB
     Indication: Plasmablastic lymphoma
     Dosage: 16 MILLIGRAM/KILOGRAM, CYCLICAL; RECEIVED ON DAY 1 DURING CYCLE 1-2 AND ON DAY 1 AND DAY 5 DURING CY
     Route: 065
  10. DIPHENHYDRAMINE [Concomitant]
     Active Substance: DIPHENHYDRAMINE
     Indication: Infusion related reaction
     Dosage: UNK
     Route: 065
  11. DIPHENHYDRAMINE [Concomitant]
     Active Substance: DIPHENHYDRAMINE
     Indication: Rash
  12. DIPHENHYDRAMINE [Concomitant]
     Active Substance: DIPHENHYDRAMINE
     Indication: Pruritus

REACTIONS (7)
  - Respiratory arrest [Fatal]
  - Asthma [Fatal]
  - Toxicity to various agents [Fatal]
  - Chronic obstructive pulmonary disease [Unknown]
  - Parainfluenzae virus infection [Unknown]
  - Respiratory syncytial virus infection [Unknown]
  - Off label use [Unknown]
